FAERS Safety Report 20322802 (Version 3)
Quarter: 2022Q1

REPORT INFORMATION
  Report Type: Spontaneous
  Country: US (occurrence: US)
  Receive Date: 20220111
  Receipt Date: 20220127
  Transmission Date: 20220423
  Serious: Yes (Life-Threatening, Hospitalization, Other)
  Sender: FDA-Public Use
  Company Number: US-GLAXOSMITHKLINE-US2022AMR002934

PATIENT
  Age: 54 Year
  Sex: Female
  Weight: 86.2 kg

DRUGS (1)
  1. SOTROVIMAB [Suspect]
     Active Substance: SOTROVIMAB
     Indication: COVID-19
     Dosage: 500 MG, ONCE
     Route: 042
     Dates: start: 20220105, end: 20220105

REACTIONS (18)
  - Palpitations [Recovered/Resolved]
  - Chest pain [Recovered/Resolved]
  - Nausea [Recovered/Resolved]
  - Vomiting [Recovered/Resolved]
  - Oxygen saturation decreased [Recovered/Resolved]
  - Hypotension [Recovered/Resolved]
  - Heart rate decreased [Recovered/Resolved]
  - Hypersensitivity [Recovered/Resolved]
  - Bradycardia [Recovered/Resolved]
  - Hypokalaemia [Recovered/Resolved]
  - Anaphylactic reaction [Unknown]
  - Feeling abnormal [Unknown]
  - Respiratory tract infection viral [Unknown]
  - Anaemia [Unknown]
  - Pain in extremity [Unknown]
  - Chest discomfort [Recovered/Resolved]
  - Arthralgia [Unknown]
  - Neck pain [Unknown]

NARRATIVE: CASE EVENT DATE: 20220101
